FAERS Safety Report 7134004-5 (Version None)
Quarter: 2010Q4

REPORT INFORMATION
  Report Type: 
  Country: None (occurrence: None)
  Receive Date: 20101203
  Receipt Date: 20101119
  Transmission Date: 20110411
  Serious: Yes (Other)
  Sender: FDA-Public Use
  Company Number: US-RANBAXY-2010RR-39893

PATIENT
  Sex: Male

DRUGS (5)
  1. CIPROFLOXACIN [Suspect]
     Indication: INFECTION
     Dosage: 500 MG, BID
     Route: 065
  2. LEVAQUIN [Suspect]
     Indication: LOCALISED INFECTION
     Dosage: 750 MG, QD
     Route: 048
     Dates: start: 20070829
  3. LEVAQUIN [Suspect]
     Indication: THERMAL BURN
     Dosage: 750 MG, QD
     Dates: start: 20070906
  4. LEVAQUIN [Suspect]
     Dosage: 750 MG, QD
     Dates: start: 20080122
  5. LEVAQUIN [Suspect]
     Dosage: 750 MG, QD
     Dates: start: 20080807

REACTIONS (6)
  - BURSITIS [None]
  - EXOSTOSIS [None]
  - JOINT RANGE OF MOTION DECREASED [None]
  - PAIN [None]
  - TENDON RUPTURE [None]
  - TENDONITIS [None]
